FAERS Safety Report 4984990-4 (Version None)
Quarter: 2006Q2

REPORT INFORMATION
  Report Type: 
  Country: None (occurrence: None)
  Receive Date: 20060426
  Receipt Date: 20060426
  Transmission Date: 20061013
  Serious: Yes (Life-Threatening, Hospitalization)
  Sender: FDA-Public Use
  Company Number: None

PATIENT
  Age: 25 Year
  Sex: Male
  Weight: 66.6788 kg

DRUGS (19)
  1. IMIPENEM/CILASTATIN  250MG  MERCK [Suspect]
     Indication: LUNG INFECTION PSEUDOMONAL
     Dosage: 250 MG EVERY 8 HOURS IV
     Route: 042
     Dates: start: 20050325, end: 20050421
  2. OYSTERSHELL CALCIUM [Concomitant]
  3. FOLIC ACID [Concomitant]
  4. ULTRASE MT20 [Concomitant]
  5. DILTIAZEM [Concomitant]
  6. PRAVASTATIN [Concomitant]
  7. AMITRIPTYLINE HCL [Concomitant]
  8. METOCLOPRAMIDE [Concomitant]
  9. THERAPEUTIC MULTIVITAMIN [Concomitant]
  10. SODIUM BICARB [Concomitant]
  11. CALCITRIOL [Concomitant]
  12. CALCIUM ACETATE [Concomitant]
  13. TOBRAMYCIN INH [Concomitant]
  14. SODIUM BICARBONATE [Concomitant]
  15. MYCOPHENOLATE [Concomitant]
  16. PANTOPRAZOLE [Concomitant]
  17. REGULAR INSULIN [Concomitant]
  18. CYCLOSPORINE [Concomitant]
  19. FERROUS GLUCONATE [Concomitant]

REACTIONS (7)
  - CLOSTRIDIUM DIFFICILE TOXIN TEST POSITIVE [None]
  - COLITIS PSEUDOMEMBRANOUS [None]
  - FLUID OVERLOAD [None]
  - METABOLIC ACIDOSIS [None]
  - PNEUMONIA [None]
  - RENAL FAILURE ACUTE [None]
  - WHITE BLOOD CELL COUNT INCREASED [None]
